FAERS Safety Report 7730504-5 (Version None)
Quarter: 2011Q3

REPORT INFORMATION
  Report Type: 
  Country: None (occurrence: None)
  Receive Date: 20110906
  Receipt Date: 20110902
  Transmission Date: 20111222
  Serious: Yes (Hospitalization)
  Sender: FDA-Public Use
  Company Number: IT-SANOFI-AVENTIS-2011SA056425

PATIENT
  Age: 42 Year
  Sex: Female

DRUGS (5)
  1. ZANTAC [Concomitant]
  2. TAXOTERE [Suspect]
     Route: 041
     Dates: start: 20110519, end: 20110519
  3. KYTRIL [Concomitant]
  4. DEXAMETHASONE [Concomitant]
  5. TAXOTERE [Suspect]
     Route: 041
     Dates: start: 20110811, end: 20110811

REACTIONS (5)
  - ABDOMINAL PAIN [None]
  - VOMITING [None]
  - LEUKOPENIA [None]
  - ABNORMAL FAECES [None]
  - TETANY [None]
